FAERS Safety Report 8140630-7 (Version None)
Quarter: 2012Q1

REPORT INFORMATION
  Report Type: 
  Country: None (occurrence: None)
  Receive Date: 20120216
  Receipt Date: 20120127
  Transmission Date: 20120608
  Serious: Yes (Death, Other)
  Sender: FDA-Public Use
  Company Number: US-CELGENEUS-163-21880-11102110

PATIENT
  Sex: Male

DRUGS (21)
  1. ACETAMINOPHEN [Concomitant]
     Route: 065
     Dates: end: 20100811
  2. LORAZEPAM [Concomitant]
     Dosage: .5 MILLIGRAM
     Route: 065
     Dates: end: 20100811
  3. REVLIMID [Suspect]
     Dosage: 15 MILLIGRAM
     Route: 048
     Dates: start: 20100719, end: 20100811
  4. METOCLOPRAMIDE [Concomitant]
     Dosage: 12.5 MILLIGRAM
     Route: 065
     Dates: end: 20100811
  5. VITAMIN B12/FOLIC ACID [Concomitant]
     Dosage: 1 MILLIGRAM
     Route: 065
     Dates: end: 20100811
  6. ALLOPURINOL [Concomitant]
     Dosage: 100 MILLIGRAM
     Route: 065
     Dates: end: 20100920
  7. CALCITONIN SALMON [Concomitant]
     Dosage: 200 UNIT
     Route: 065
     Dates: end: 20100811
  8. CALCIUM PLUS VITAMIN D [Concomitant]
     Dosage: 500/200
     Route: 065
     Dates: end: 20100811
  9. ALENDRONATE SODIUM [Concomitant]
     Dosage: 70 MILLIGRAM
     Route: 065
     Dates: end: 20100811
  10. NIACIN [Concomitant]
     Dosage: 250 MILLIGRAM
     Route: 065
     Dates: end: 20100811
  11. COMPLETE SENIOR VITAMIN [Concomitant]
     Dosage: 1
     Route: 065
     Dates: end: 20100811
  12. ONDANSETRON [Concomitant]
     Dosage: 8 MILLIGRAM
     Route: 065
     Dates: end: 20100811
  13. GINKO BILOBA [Concomitant]
     Dosage: 1
     Route: 065
     Dates: end: 20100811
  14. TAMSULOSIN HCL [Concomitant]
     Dosage: .4 MILLIGRAM
     Route: 065
     Dates: end: 20100811
  15. TERAZOSIN HCL [Concomitant]
     Dosage: 5 MILLIGRAM
     Route: 065
     Dates: end: 20100811
  16. GLUCOSAMINE CHONDROITIN [Concomitant]
     Dosage: 2
     Route: 065
     Dates: end: 20100811
  17. VITAMIN B6 [Concomitant]
     Dosage: 100
     Route: 065
     Dates: end: 20100811
  18. COQ10 [Concomitant]
     Dosage: 100 MILLIGRAM
     Route: 065
     Dates: end: 20100811
  19. ASCORBIC ACID [Concomitant]
     Dosage: 500 MILLIGRAM
     Route: 065
     Dates: end: 20100811
  20. SYNTHROID [Concomitant]
     Dosage: .15 MILLIGRAM
     Route: 065
     Dates: end: 20100811
  21. SIMVASTATIN [Concomitant]
     Dosage: 10 MILLIGRAM
     Route: 065
     Dates: end: 20100811

REACTIONS (3)
  - MYELODYSPLASTIC SYNDROME TRANSFORMATION [None]
  - ACUTE MYELOID LEUKAEMIA [None]
  - RENAL FAILURE [None]
